FAERS Safety Report 18594784 (Version 9)
Quarter: 2021Q2

REPORT INFORMATION
  Report Type: Spontaneous
  Country: CA (occurrence: CA)
  Receive Date: 20201209
  Receipt Date: 20210608
  Transmission Date: 20210717
  Serious: Yes (Hospitalization)
  Sender: FDA-Public Use
  Company Number: CA-PFIZER INC-2020214669

PATIENT
  Age: 66 Year
  Sex: Male
  Weight: 71.7 kg

DRUGS (19)
  1. ZIRABEV [Suspect]
     Active Substance: BEVACIZUMAB-BVZR
     Dosage: 1100 MG, EVERY 3 WEEKS
     Route: 042
     Dates: start: 20200903
  2. ZIRABEV [Suspect]
     Active Substance: BEVACIZUMAB-BVZR
     Dosage: 1100 MG, EVERY 3 WEEKS
     Route: 042
     Dates: start: 20200903
  3. ZIRABEV [Suspect]
     Active Substance: BEVACIZUMAB-BVZR
     Dosage: 1100 MG, EVERY 3 WEEKS
     Route: 042
     Dates: start: 20201118
  4. ZIRABEV [Suspect]
     Active Substance: BEVACIZUMAB-BVZR
     Dosage: 1100 MG, EVERY 3 WEEKS
     Route: 042
     Dates: start: 20200723
  5. LOMUSTINE. [Concomitant]
     Active Substance: LOMUSTINE
     Dosage: UNK
  6. ZIRABEV [Suspect]
     Active Substance: BEVACIZUMAB-BVZR
     Dosage: 1100 MG, EVERY 3 WEEKS
     Route: 042
     Dates: start: 20200610
  7. ZIRABEV [Suspect]
     Active Substance: BEVACIZUMAB-BVZR
     Dosage: 1100 MG
     Route: 042
     Dates: start: 20200703
  8. ZIRABEV [Suspect]
     Active Substance: BEVACIZUMAB-BVZR
     Dosage: 1100 MG, EVERY 3 WEEKS
     Route: 042
     Dates: start: 20201118
  9. ZIRABEV [Suspect]
     Active Substance: BEVACIZUMAB-BVZR
     Dosage: 300 MG, EVERY 3 WEEKS
     Route: 042
     Dates: start: 20210315
  10. ZIRABEV [Suspect]
     Active Substance: BEVACIZUMAB-BVZR
     Indication: GLIOBLASTOMA
     Dosage: 1100 MG, EVERY 3 WEEKS
     Route: 042
     Dates: start: 20200610, end: 20210315
  11. ZIRABEV [Suspect]
     Active Substance: BEVACIZUMAB-BVZR
     Dosage: 1100 MG
     Route: 042
     Dates: start: 20200703
  12. ZIRABEV [Suspect]
     Active Substance: BEVACIZUMAB-BVZR
     Dosage: 1100 MG, EVERY 3 WEEKS
     Route: 042
     Dates: start: 20200813
  13. ZIRABEV [Suspect]
     Active Substance: BEVACIZUMAB-BVZR
     Dosage: 1100 MG, EVERY 3 WEEKS
     Route: 042
     Dates: start: 20210201
  14. ZIRABEV [Suspect]
     Active Substance: BEVACIZUMAB-BVZR
     Dosage: 1100 MG, EVERY 3 WEEKS
     Route: 042
     Dates: start: 20210223
  15. ZIRABEV [Suspect]
     Active Substance: BEVACIZUMAB-BVZR
     Dosage: 1100 MG, EVERY 3 WEEKS
     Route: 042
     Dates: start: 20210223
  16. ZIRABEV [Suspect]
     Active Substance: BEVACIZUMAB-BVZR
     Dosage: 1100 MG, EVERY 3 WEEKS
     Route: 042
     Dates: start: 20200923
  17. ZIRABEV [Suspect]
     Active Substance: BEVACIZUMAB-BVZR
     Dosage: 1100 MG, EVERY 3 WEEKS
     Route: 042
     Dates: start: 20200723
  18. ZIRABEV [Suspect]
     Active Substance: BEVACIZUMAB-BVZR
     Dosage: 1100 MG, EVERY 3 WEEKS
     Route: 042
     Dates: start: 20200813
  19. ZIRABEV [Suspect]
     Active Substance: BEVACIZUMAB-BVZR
     Dosage: 800 MG, EVERY 3 WEEKS
     Route: 042
     Dates: start: 20210315

REACTIONS (20)
  - Inappropriate schedule of product administration [Unknown]
  - Contusion [Unknown]
  - Glomerular filtration rate decreased [Unknown]
  - Blood pressure increased [Unknown]
  - Seizure [Not Recovered/Not Resolved]
  - Product dose omission issue [Unknown]
  - Monocyte count decreased [Unknown]
  - Platelet count decreased [Unknown]
  - Neutrophil count increased [Unknown]
  - Blood albumin decreased [Unknown]
  - Off label use [Unknown]
  - Muscular weakness [Unknown]
  - Blood pressure fluctuation [Unknown]
  - Granulocyte count increased [Unknown]
  - Lymphocyte count decreased [Unknown]
  - Alanine aminotransferase increased [Unknown]
  - Blood creatinine increased [Unknown]
  - White blood cell count increased [Unknown]
  - Mean cell haemoglobin concentration increased [Unknown]
  - Enterococcus test positive [Unknown]

NARRATIVE: CASE EVENT DATE: 2020
